FAERS Safety Report 11291258 (Version 1)
Quarter: 2015Q3

REPORT INFORMATION
  Report Type: Spontaneous
  Country: US (occurrence: None)
  Receive Date: 20150720
  Receipt Date: 20150720
  Transmission Date: 20151125
  Serious: Yes (Other)
  Sender: FDA-Public Use
  Company Number: US-2015BDS000120

PATIENT
  Age: 27 Year
  Sex: Female

DRUGS (1)
  1. BUNAVAIL [Suspect]
     Active Substance: BUPRENORPHINE HYDROCHLORIDE\NALOXONE HYDROCHLORIDE DIHYDRATE
     Indication: DRUG DEPENDENCE
     Dosage: BUCCAL FILM
     Route: 002
     Dates: start: 20150616, end: 201506

REACTIONS (3)
  - Visual impairment [None]
  - Dyspnoea [None]
  - Rash [None]

NARRATIVE: CASE EVENT DATE: 20150627
